FAERS Safety Report 5638197-8 (Version None)
Quarter: 2008Q1

REPORT INFORMATION
  Report Type: 
  Country: None (occurrence: None)
  Receive Date: 20080226
  Receipt Date: 20080212
  Transmission Date: 20080703
  Serious: Yes (Hospitalization)
  Sender: FDA-Public Use
  Company Number: US-ELI_LILLY_AND_COMPANY-US200802001103

PATIENT
  Sex: Female

DRUGS (8)
  1. FORTEO [Suspect]
     Indication: OSTEOPOROSIS
     Dosage: UNK, UNK
     Dates: start: 20070801, end: 20071215
  2. FORTEO [Suspect]
     Dates: start: 20071229
  3. FORTEO [Suspect]
     Dates: start: 20080109, end: 20080101
  4. FORTEO [Suspect]
     Dates: start: 20080115, end: 20080203
  5. SPIRIVA [Concomitant]
     Indication: LUNG DISORDER
  6. LASIX [Concomitant]
  7. DIGITALIS TAB [Concomitant]
  8. CALCIUM [Concomitant]
     Indication: SUPPLEMENTATION THERAPY

REACTIONS (12)
  - ARTHRALGIA [None]
  - BONE DISORDER [None]
  - BONE PAIN [None]
  - CARDIAC FAILURE CONGESTIVE [None]
  - CHEST DISCOMFORT [None]
  - DYSPNOEA [None]
  - GAIT DISTURBANCE [None]
  - INJECTION SITE BRUISING [None]
  - JOINT STIFFNESS [None]
  - MALAISE [None]
  - MUSCULOSKELETAL DISORDER [None]
  - MUSCULOSKELETAL STIFFNESS [None]
